FAERS Safety Report 25529234 (Version 1)
Quarter: 2025Q3

REPORT INFORMATION
  Report Type: Spontaneous
  Country: US (occurrence: None)
  Receive Date: 20250708
  Receipt Date: 20250708
  Transmission Date: 20251021
  Serious: Yes (Disabling)
  Sender: FDA-CTU
  Company Number: None

PATIENT
  Age: 45 Year
  Sex: Female
  Weight: 78.75 kg

DRUGS (12)
  1. DUPIXENT [Suspect]
     Active Substance: DUPILUMAB
     Indication: Dermatitis atopic
     Route: 030
     Dates: start: 20250505, end: 20250630
  2. SYNTHROID [Concomitant]
     Active Substance: LEVOTHYROXINE SODIUM
  3. VITAMIN D NOS [Concomitant]
     Active Substance: CHOLECALCIFEROL\ERGOCALCIFEROL
  4. PANTOPRAZOLE SODIUM [Concomitant]
     Active Substance: PANTOPRAZOLE SODIUM
  5. CALCITRIOL [Concomitant]
     Active Substance: CALCITRIOL
  6. FERROUS SULFATE [Concomitant]
     Active Substance: FERROUS SULFATE
  7. GABAPENTIN [Concomitant]
     Active Substance: GABAPENTIN
  8. VITAMIN B12 [Concomitant]
     Active Substance: CYANOCOBALAMIN
  9. vit a [Concomitant]
  10. CALCIUM CITRATE [Concomitant]
     Active Substance: CALCIUM CITRATE
  11. MINERALS\VITAMINS [Concomitant]
     Active Substance: MINERALS\VITAMINS
  12. PROBIOTICS NOS [Concomitant]
     Active Substance: PROBIOTICS NOS

REACTIONS (10)
  - Back pain [None]
  - Arthralgia [None]
  - Spinal osteoarthritis [None]
  - Blood calcium decreased [None]
  - Loss of personal independence in daily activities [None]
  - Musculoskeletal stiffness [None]
  - Pain [None]
  - Neuralgia [None]
  - Paraesthesia [None]
  - Pain [None]

NARRATIVE: CASE EVENT DATE: 20250509
